FAERS Safety Report 10020776 (Version 4)
Quarter: 2015Q2

REPORT INFORMATION
  Report Type: Spontaneous
  Country: ES (occurrence: ES)
  Receive Date: 20140319
  Receipt Date: 20150429
  Transmission Date: 20150821
  Serious: Yes (Life-Threatening, Hospitalization)
  Sender: FDA-Public Use
  Company Number: ES-009507513-1401ESP010867

PATIENT
  Age: 48 Year
  Sex: Male
  Weight: 104.5 kg

DRUGS (3)
  1. VICTRELIS [Suspect]
     Active Substance: BOCEPREVIR
     Indication: HEPATITIS C
     Dosage: 800 MG/8H, TOTAL DAILY DOSE: 2400MG/DAILY
     Route: 048
     Dates: start: 20131030, end: 20131231
  2. RIBAVIRIN. [Suspect]
     Active Substance: RIBAVIRIN
     Indication: HEPATITIS C
     Dosage: TOTAL DAILY DOSE 1200 MG, QD
     Route: 048
     Dates: start: 20131002, end: 20131231
  3. PEGINTRON [Suspect]
     Active Substance: PEGINTERFERON ALFA-2B
     Indication: HEPATITIS C
     Dosage: 150 MICROGRAM, QW
     Route: 058
     Dates: start: 20131002, end: 20131231

REACTIONS (5)
  - Neutropenia [Recovered/Resolved]
  - Urinary tract disorder [Unknown]
  - Lymphadenopathy [Unknown]
  - Emphysema [Unknown]
  - Pyrexia [Recovered/Resolved]

NARRATIVE: CASE EVENT DATE: 201312
